FAERS Safety Report 8404493-4 (Version None)
Quarter: 2012Q2

REPORT INFORMATION
  Report Type: 
  Country: None (occurrence: None)
  Receive Date: 20120601
  Receipt Date: 20111201
  Transmission Date: 20120825
  Serious: No
  Sender: FDA-Public Use
  Company Number: US-NOVEN-11US003713

PATIENT
  Sex: Male
  Weight: 23.129 kg

DRUGS (2)
  1. DAYTRANA [Suspect]
     Dosage: 20 MG, QD FOR 9 HOURS
     Dates: start: 20111001
  2. DAYTRANA [Suspect]
     Indication: ATTENTION DEFICIT/HYPERACTIVITY DISORDER
     Dosage: UNK MG, QD
     Route: 062
     Dates: start: 20110910

REACTIONS (7)
  - DRUG ADMINISTRATION ERROR [None]
  - APPLICATION SITE SWELLING [None]
  - PRODUCT QUALITY ISSUE [None]
  - INCORRECT DRUG ADMINISTRATION DURATION [None]
  - APPLICATION SITE IRRITATION [None]
  - APPLICATION SITE PRURITUS [None]
  - APPLICATION SITE ERYTHEMA [None]
